FAERS Safety Report 10142849 (Version 1)
Quarter: 2014Q2

REPORT INFORMATION
  Report Type: Spontaneous
  Country: US (occurrence: US)
  Receive Date: 20140430
  Receipt Date: 20140430
  Transmission Date: 20141212
  Serious: No
  Sender: FDA-Public Use
  Company Number: US-JNJFOC-20140417108

PATIENT
  Age: 36 Year
  Sex: Female

DRUGS (2)
  1. INVEGA SUSTENNA [Suspect]
     Indication: PRODUCT USED FOR UNKNOWN INDICATION
     Route: 030
  2. VISTARIL [Concomitant]
     Route: 065

REACTIONS (2)
  - Galactorrhoea [Recovered/Resolved]
  - Amenorrhoea [Recovered/Resolved]
